FAERS Safety Report 8969462 (Version 1)
Quarter: 2012Q4

REPORT INFORMATION
  Report Type: 
  Country: US (occurrence: US)
  Receive Date: 20121218
  Receipt Date: 20121218
  Transmission Date: 20130627
  Serious: No
  Sender: FDA-Public Use
  Company Number: US-ELI_LILLY_AND_COMPANY-US201212003534

PATIENT
  Sex: Female

DRUGS (8)
  1. ZYPREXA RELPREVV [Suspect]
     Indication: SCHIZOPHRENIA, UNDIFFERENTIATED TYPE
     Dosage: 300 mg, 2/M
     Dates: start: 20120809
  2. METFORMIN [Concomitant]
  3. LISINOPRIL [Concomitant]
  4. PRILOSEC [Concomitant]
  5. CLONIDINE [Concomitant]
  6. ASPIRIN [Concomitant]
  7. LOPRESSOR [Concomitant]
  8. ATIVAN [Concomitant]

REACTIONS (2)
  - Neutrophil count decreased [Unknown]
  - Blood pressure abnormal [Unknown]
